FAERS Safety Report 15958138 (Version 1)
Quarter: 2019Q1

REPORT INFORMATION
  Report Type: Not Available
  Country: US (occurrence: US)
  Receive Date: 20190213
  Receipt Date: 20190213
  Transmission Date: 20190417
  Serious: No
  Sender: FDA-Public Use
  Company Number: US-NEUROCRINE BIOSCIENCES INC.-2019NBI00322

PATIENT
  Age: 59 Year
  Sex: Female

DRUGS (2)
  1. INGREZZA [Suspect]
     Active Substance: VALBENAZINE
     Route: 048
     Dates: start: 20171104
  2. INGREZZA [Suspect]
     Active Substance: VALBENAZINE
     Indication: TARDIVE DYSKINESIA
     Route: 048
     Dates: start: 20171027, end: 20171103

REACTIONS (4)
  - Musculoskeletal stiffness [Unknown]
  - Depression [Unknown]
  - Dyskinesia [Unknown]
  - Drug ineffective [None]

NARRATIVE: CASE EVENT DATE: 20181017
